FAERS Safety Report 4345948-1 (Version None)
Quarter: 2004Q2

REPORT INFORMATION
  Report Type: 
  Country: None (occurrence: None)
  Receive Date: 20040423
  Receipt Date: 20040423
  Transmission Date: 20050107
  Serious: Yes (Life-Threatening)
  Sender: FDA-Public Use
  Company Number: None

PATIENT
  Age: 43 Year
  Sex: Female
  Weight: 106.5953 kg

DRUGS (6)
  1. PEG-INTRON [Suspect]
     Indication: BIOPSY LIVER
     Dosage: 1 PKG/WE WEEKLY SQ
     Route: 058
     Dates: start: 20011119, end: 20020115
  2. PEG-INTRON [Suspect]
     Indication: LIVER FUNCTION TEST
     Dosage: 1 PKG/WE WEEKLY SQ
     Route: 058
     Dates: start: 20011119, end: 20020115
  3. PEG-INTRON [Suspect]
     Indication: VIRAL LOAD
     Dosage: 1 PKG/WE WEEKLY SQ
     Route: 058
     Dates: start: 20011119, end: 20020115
  4. RIBAVIRIN [Suspect]
     Indication: BIOPSY LIVER
     Dosage: 600 MG 2X DAY TWICE DAILY ORAL
     Route: 048
     Dates: start: 20011119, end: 20020115
  5. RIBAVIRIN [Suspect]
     Indication: LIVER FUNCTION TEST
     Dosage: 600 MG 2X DAY TWICE DAILY ORAL
     Route: 048
     Dates: start: 20011119, end: 20020115
  6. RIBAVIRIN [Suspect]
     Indication: VIRAL LOAD
     Dosage: 600 MG 2X DAY TWICE DAILY ORAL
     Route: 048
     Dates: start: 20011119, end: 20020115

REACTIONS (3)
  - ARTHRALGIA [None]
  - DIABETES MELLITUS [None]
  - MAJOR DEPRESSION [None]
